FAERS Safety Report 8136525-5 (Version None)
Quarter: 2012Q1

REPORT INFORMATION
  Report Type: 
  Country: None (occurrence: None)
  Receive Date: 20120214
  Receipt Date: 20120203
  Transmission Date: 20120608
  Serious: Yes (Other)
  Sender: FDA-Public Use
  Company Number: PHHY2009JP58777

PATIENT
  Age: 33 Year
  Sex: Male

DRUGS (1)
  1. TEGRETOL [Suspect]
     Indication: BIPOLAR DISORDER
     Dosage: 400 MG/ DAY
     Route: 048
     Dates: start: 20090216

REACTIONS (9)
  - RASH ERYTHEMATOUS [None]
  - HEPATIC FUNCTION ABNORMAL [None]
  - LYMPHOCYTIC INFILTRATION [None]
  - PRURITUS [None]
  - SCRATCH [None]
  - DRUG ERUPTION [None]
  - PYREXIA [None]
  - LYMPHADENOPATHY [None]
  - HUMAN HERPESVIRUS 6 INFECTION [None]
